FAERS Safety Report 6616202-X (Version None)
Quarter: 2010Q1

REPORT INFORMATION
  Report Type: 
  Country: None (occurrence: None)
  Receive Date: 20100305
  Receipt Date: 20100224
  Transmission Date: 20100710
  Serious: Yes (Other)
  Sender: FDA-Public Use
  Company Number: PHHY2010CA10840

PATIENT
  Sex: Female

DRUGS (2)
  1. DIOVAN [Suspect]
     Dosage: ONE TABLET (80 MG) DAILY
     Route: 048
  2. DICYCLOMINE [Concomitant]
     Dosage: UNK

REACTIONS (6)
  - ABDOMINAL PAIN UPPER [None]
  - EATING DISORDER [None]
  - GASTROINTESTINAL OBSTRUCTION [None]
  - HEADACHE [None]
  - PALPITATIONS [None]
  - WEIGHT DECREASED [None]
